FAERS Safety Report 8540440-2 (Version None)
Quarter: 2012Q3

REPORT INFORMATION
  Report Type: 
  Country: None (occurrence: None)
  Receive Date: 20120726
  Receipt Date: 20110708
  Transmission Date: 20120928
  Serious: No
  Sender: FDA-Public Use
  Company Number: US-ASTRAZENECA-2011SE40896

PATIENT
  Age: 66 Year
  Sex: Female
  Weight: 68 kg

DRUGS (6)
  1. ADVAIR DISKUS 100/50 [Concomitant]
     Indication: ASTHMA
     Dosage: 250/50,TWO TIMES A DAY
  2. SEROQUEL [Suspect]
     Indication: BIPOLAR DISORDER
     Route: 048
     Dates: end: 20110501
  3. SEROQUEL [Suspect]
     Route: 048
  4. MIRALAX [Concomitant]
     Dosage: DAILY
  5. PROAIR HFA [Concomitant]
     Indication: ASTHMA
  6. ZYRTEC [Concomitant]
     Indication: ASTHMA

REACTIONS (3)
  - SOMNOLENCE [None]
  - DRUG DOSE OMISSION [None]
  - IRRITABILITY [None]
